FAERS Safety Report 10268241 (Version 1)
Quarter: 2014Q2

REPORT INFORMATION
  Report Type: Report from Study
  Country: ES (occurrence: ES)
  Receive Date: 20140630
  Receipt Date: 20140630
  Transmission Date: 20141212
  Serious: Yes (Hospitalization, Other)
  Sender: FDA-Public Use
  Company Number: PHHY2014ES079444

PATIENT
  Age: 73 Year
  Sex: Male

DRUGS (13)
  1. OXALIPLATIN [Suspect]
     Indication: COLORECTAL CANCER METASTATIC
     Route: 042
     Dates: start: 20120524
  2. 5-FLUOROURACIL [Suspect]
     Indication: COLORECTAL CANCER METASTATIC
     Route: 040
     Dates: start: 20120524
  3. 5-FLUOROURACIL [Suspect]
     Route: 042
  4. FOLINIC ACID [Suspect]
     Indication: COLORECTAL CANCER METASTATIC
     Route: 042
     Dates: start: 20120524
  5. BEVACIZUMAB [Suspect]
     Indication: COLORECTAL CANCER METASTATIC
     Route: 042
     Dates: start: 20120524
  6. PLACEBO [Suspect]
     Indication: COLORECTAL CANCER METASTATIC
     Route: 042
     Dates: start: 20120524
  7. ENALAPRIL [Concomitant]
     Indication: HYPERTENSION
     Dosage: 5 MG, UNK
     Route: 048
     Dates: start: 20120524
  8. ENALAPRIL [Concomitant]
     Dosage: 5 MG, UNK
     Route: 048
     Dates: start: 20120605, end: 20120611
  9. SCOPOLAMINE [Concomitant]
     Indication: SUBILEUS
     Dosage: 1 DF, UNK
     Route: 048
     Dates: start: 20120524
  10. SCOPOLAMINE [Concomitant]
     Dosage: 1 DF, UNK
     Route: 042
     Dates: start: 20120524, end: 20120524
  11. PARACETAMOL [Concomitant]
     Indication: PERINEAL PAIN
     Dosage: 1 G, UNK
     Route: 048
     Dates: start: 20120611, end: 20120620
  12. PARACETAMOL [Concomitant]
     Dosage: 650 MG, UNK
     Route: 048
     Dates: start: 20120621
  13. OMEPRAZOLE [Concomitant]

REACTIONS (3)
  - Intestinal obstruction [Recovered/Resolved]
  - Hypokalaemia [Unknown]
  - Diarrhoea [Recovered/Resolved]
